FAERS Safety Report 14956801 (Version 1)
Quarter: 2018Q2

REPORT INFORMATION
  Report Type: Spontaneous
  Country: US (occurrence: US)
  Receive Date: 20180509
  Receipt Date: 20180509
  Transmission Date: 20180711
  Serious: Yes (Other)
  Sender: FDA-Public Use
  Company Number: None

PATIENT
  Age: 39 Year
  Sex: Female
  Weight: 76.5 kg

DRUGS (8)
  1. KEFLEX [Concomitant]
     Active Substance: CEPHALEXIN
  2. NEOMYCIN/BACITRACIN/HYDROCORTISONE [Concomitant]
  3. REFRESH EYE OINT [Concomitant]
  4. TYLENOL WITH CODEINE [Concomitant]
     Active Substance: ACETAMINOPHEN\CODEINE PHOSPHATE
  5. PREDNISOLONE. [Concomitant]
     Active Substance: PREDNISOLONE
  6. MEDROL DOSE PACK [Concomitant]
     Active Substance: METHYLPREDNISOLONE
  7. TETRACAINE OPHTHALMIC DROP [Suspect]
     Active Substance: TETRACAINE HYDROCHLORIDE
     Indication: HYPOAESTHESIA EYE
     Dosage: ?          QUANTITY:1 GTT DROP(S);?
     Route: 047
     Dates: start: 20180507, end: 20180507
  8. BESIVANCE [Concomitant]
     Active Substance: BESIFLOXACIN

REACTIONS (6)
  - Eye pain [None]
  - Skin burning sensation [None]
  - Eye swelling [None]
  - Eye irritation [None]
  - Ocular hyperaemia [None]
  - Vision blurred [None]

NARRATIVE: CASE EVENT DATE: 20180507
